FAERS Safety Report 7971908-5 (Version None)
Quarter: 2011Q4

REPORT INFORMATION
  Report Type: 
  Country: None (occurrence: None)
  Receive Date: 20111212
  Receipt Date: 20111201
  Transmission Date: 20120403
  Serious: Yes (Other)
  Sender: FDA-Public Use
  Company Number: PHHY2011AU105499

PATIENT
  Sex: Female

DRUGS (2)
  1. GLEEVEC [Suspect]
     Indication: HYPEREOSINOPHILIC SYNDROME
     Dosage: 100 MG, DAILY
     Dates: start: 20020101
  2. GLEEVEC [Suspect]
     Dosage: 400 MG, DAILY

REACTIONS (7)
  - DRUG RESISTANCE [None]
  - DYSPNOEA EXERTIONAL [None]
  - COUGH [None]
  - EOSINOPHILIA [None]
  - LUNG DISORDER [None]
  - HYPEREOSINOPHILIC SYNDROME [None]
  - CHEST DISCOMFORT [None]
